FAERS Safety Report 25111806 (Version 1)
Quarter: 2025Q1

REPORT INFORMATION
  Report Type: Spontaneous
  Country: TH (occurrence: TH)
  Receive Date: 20250324
  Receipt Date: 20250324
  Transmission Date: 20250409
  Serious: Yes (Death, Hospitalization)
  Sender: MYLAN
  Company Number: TH-MYLANLABS-2025M1024942

PATIENT
  Age: 46 Year
  Sex: Male

DRUGS (2)
  1. VORICONAZOLE [Suspect]
     Active Substance: VORICONAZOLE
     Indication: Pneumonia fungal
  2. VORICONAZOLE [Suspect]
     Active Substance: VORICONAZOLE
     Indication: Infection

REACTIONS (1)
  - Drug ineffective [Fatal]
